APPROVED DRUG PRODUCT: HEPARIN SODIUM
Active Ingredient: HEPARIN SODIUM
Strength: 5,000 UNITS/ML
Dosage Form/Route: INJECTABLE;INJECTION
Application: A088100 | Product #001
Applicant: HOSPIRA INC
Approved: Apr 28, 1983 | RLD: No | RS: Yes | Type: RX